FAERS Safety Report 18020650 (Version 2)
Quarter: 2020Q3

REPORT INFORMATION
  Report Type: Spontaneous
  Country: US (occurrence: US)
  Receive Date: 20200714
  Receipt Date: 20200715
  Transmission Date: 20201103
  Serious: Yes (Other)
  Sender: FDA-Public Use
  Company Number: US-PFIZER INC-2020269023

PATIENT
  Age: 75 Year
  Sex: Female

DRUGS (1)
  1. IBRANCE [Suspect]
     Active Substance: PALBOCICLIB
     Dosage: 125 MG
     Dates: start: 20200622

REACTIONS (5)
  - Fatigue [Unknown]
  - Hypotension [Unknown]
  - Renal impairment [Unknown]
  - Blood count abnormal [Unknown]
  - Dizziness [Unknown]
